FAERS Safety Report 10003397 (Version 3)
Quarter: 2014Q2

REPORT INFORMATION
  Report Type: Spontaneous
  Country: DK (occurrence: IT)
  Receive Date: 20140312
  Receipt Date: 20140418
  Transmission Date: 20141212
  Serious: Yes (Hospitalization)
  Sender: FDA-Public Use
  Company Number: IT-FRI-1000060429

PATIENT
  Age: 25 Year
  Sex: Male

DRUGS (2)
  1. CITALOPRAM ORAL SOLUTION [Suspect]
     Indication: INTENTIONAL SELF-INJURY
     Dosage: OVERDOSE: 15 ML IN TOTAL
     Route: 048
     Dates: start: 20140222, end: 20140222
  2. CYMBALTA [Suspect]
     Indication: INTENTIONAL SELF-INJURY
     Dosage: OVERDOSE: 28 IN TOTAL
     Route: 048
     Dates: start: 20140222, end: 20140222

REACTIONS (3)
  - Sopor [Recovered/Resolved]
  - Drug abuse [Recovered/Resolved]
  - Overdose [Recovered/Resolved]
